FAERS Safety Report 21755198 (Version 1)
Quarter: 2022Q4

REPORT INFORMATION
  Report Type: Report from Study
  Country: ES (occurrence: ES)
  Receive Date: 20221220
  Receipt Date: 20221220
  Transmission Date: 20230113
  Serious: Yes (Hospitalization)
  Sender: FDA-Public Use
  Company Number: None

PATIENT
  Age: 76 Year
  Sex: Female

DRUGS (6)
  1. CITALOPRAM [Interacting]
     Active Substance: CITALOPRAM HYDROBROMIDE
     Indication: Depression
     Dosage: 20 MILLIGRAM, QD, FILM-COATED TABLETS EFG
     Route: 048
     Dates: start: 20201116
  2. NAPROXEN SODIUM [Interacting]
     Active Substance: NAPROXEN SODIUM
     Indication: Pain
     Dosage: 1.1 GRAM, QD, TABLETS, 10 TABLETS
     Route: 048
     Dates: start: 202208, end: 20220902
  3. JARDIANCE [Concomitant]
     Active Substance: EMPAGLIFLOZIN
     Indication: Diabetes mellitus
     Dosage: 10 MILLIGRAM, QD, 10 MG FILM-COATED TABLETS 30 TAB
     Route: 048
     Dates: start: 20210614, end: 20220902
  4. PROPRANOLOL HYDROCHLORIDE [Concomitant]
     Active Substance: PROPRANOLOL HYDROCHLORIDE
     Indication: Essential tremor
     Dosage: 10 MILLIGRAM, QD, TABLETS RECUBIERTOS CON PELICUL
     Route: 048
     Dates: start: 20130910
  5. LORMETAZEPAM [Concomitant]
     Active Substance: LORMETAZEPAM
     Dosage: 1 MILLIGRAM, QD,TABLETS EFG, 30 TABLETS
     Route: 048
     Dates: start: 20201124, end: 20220902
  6. METFORMIN HYDROCHLORIDE [Concomitant]
     Active Substance: METFORMIN HYDROCHLORIDE
     Indication: Diabetes mellitus
     Dosage: 1.7 GRAM, QD
     Route: 048
     Dates: start: 20150603, end: 20220902

REACTIONS (2)
  - Gastroduodenal haemorrhage [Recovered/Resolved]
  - Drug interaction [Unknown]

NARRATIVE: CASE EVENT DATE: 20220828
